FAERS Safety Report 4548339-3 (Version None)
Quarter: 2005Q1

REPORT INFORMATION
  Report Type: 
  Country: None (occurrence: None)
  Receive Date: 20041220
  Receipt Date: 20040405
  Transmission Date: 20050727
  Serious: Yes (Hospitalization)
  Sender: FDA-Public Use
  Company Number: US_0404102089

PATIENT
  Age: 32 Year
  Sex: Male
  Weight: 91 kg

DRUGS (4)
  1. INSULIN-INSULIN-ANIMAL [Suspect]
     Indication: DIABETES MELLITUS
     Dates: end: 19910601
  2. HUMULIN 70/30 [Suspect]
     Indication: DIABETES MELLITUS
     Dates: start: 19910601, end: 19910101
  3. REGULAR ILETIN II (PORK) [Suspect]
     Indication: DIABETES MELLITUS
     Dosage: 4 U/2 DAY
     Dates: start: 19910601
  4. ILETIN-PORK NPH INSULIN (INSULIN, ANIMAL) [Suspect]
     Indication: DIABETES MELLITUS
     Dosage: 56 U DAY
     Dates: start: 19910601

REACTIONS (3)
  - BLOOD GLUCOSE DECREASED [None]
  - DYSKINESIA [None]
  - OVERWEIGHT [None]
